FAERS Safety Report 8494868 (Version 3)
Quarter: 2013Q1

REPORT INFORMATION
  Report Type: Spontaneous
  Country: US (occurrence: US)
  Receive Date: 20120405
  Receipt Date: 20130117
  Transmission Date: 20140127
  Serious: No
  Sender: FDA-Public Use
  Company Number: US-BIOGENIDEC-2012BI011274

PATIENT
  Age: 47 Year
  Sex: Female

DRUGS (2)
  1. AVONEX [Suspect]
     Indication: MULTIPLE SCLEROSIS
     Route: 030
  2. AVONEX [Suspect]
     Indication: MULTIPLE SCLEROSIS
     Route: 030
     Dates: start: 20120323

REACTIONS (11)
  - Tremor [Unknown]
  - Feeling of body temperature change [Recovered/Resolved]
  - Sluggishness [Recovered/Resolved]
  - Haemorrhage [Recovered/Resolved]
  - Fungal infection [Recovered/Resolved]
  - Dry mouth [Recovered/Resolved]
  - Injury [Recovered/Resolved]
  - Urinary incontinence [Unknown]
  - Feeling hot [Unknown]
  - Pyrexia [Unknown]
  - Chills [Recovered/Resolved]
